FAERS Safety Report 10753569 (Version 2)
Quarter: 2015Q1

REPORT INFORMATION
  Report Type: Report from Study
  Country: TW (occurrence: TW)
  Receive Date: 20150131
  Receipt Date: 20150323
  Transmission Date: 20150721
  Serious: Yes (Hospitalization)
  Sender: FDA-Public Use
  Company Number: TW-ABBVIE-15K-153-1339080-00

PATIENT
  Age: 56 Year
  Sex: Female
  Weight: 51 kg

DRUGS (2)
  1. HUMIRA [Suspect]
     Active Substance: ADALIMUMAB
     Indication: PRODUCT USED FOR UNKNOWN INDICATION
  2. HUMIRA [Suspect]
     Active Substance: ADALIMUMAB
     Indication: RHEUMATOID ARTHRITIS
     Route: 058
     Dates: start: 20140619, end: 20150114

REACTIONS (30)
  - Cough [Recovering/Resolving]
  - Musculoskeletal stiffness [Recovered/Resolved]
  - Musculoskeletal pain [Unknown]
  - Polyarthritis [Unknown]
  - Pneumonitis [Recovering/Resolving]
  - Eosinophil count decreased [Unknown]
  - Mitral valve incompetence [Unknown]
  - Pericardial effusion [Recovering/Resolving]
  - Red blood cell count decreased [Unknown]
  - Haematocrit decreased [Unknown]
  - Abdominal pain upper [Unknown]
  - Haemoglobin decreased [Unknown]
  - Protein total decreased [Unknown]
  - Urticaria [Unknown]
  - Lung infiltration [Recovering/Resolving]
  - Pain [Recovering/Resolving]
  - Circulatory collapse [Unknown]
  - Blood lactate dehydrogenase increased [Unknown]
  - Pain in extremity [Unknown]
  - Tricuspid valve incompetence [Unknown]
  - Sinus tachycardia [Recovering/Resolving]
  - White blood cell count decreased [Unknown]
  - Monocyte count increased [Unknown]
  - Palpitations [Unknown]
  - Neck pain [Unknown]
  - Cardiomegaly [Recovering/Resolving]
  - Dry mouth [Recovering/Resolving]
  - Left atrial dilatation [Unknown]
  - Electrocardiogram ST-T change [Unknown]
  - Cardiac tamponade [Unknown]

NARRATIVE: CASE EVENT DATE: 201408
